FAERS Safety Report 16409341 (Version 4)
Quarter: 2019Q3

REPORT INFORMATION
  Report Type: Report from Study
  Country: US (occurrence: US)
  Receive Date: 20190610
  Receipt Date: 20190808
  Transmission Date: 20191004
  Serious: Yes (Hospitalization)
  Sender: FDA-Public Use
  Company Number: US-JNJFOC-20190542215

PATIENT
  Age: 73 Year
  Sex: Female

DRUGS (20)
  1. DILTIAZEM. [Concomitant]
     Active Substance: DILTIAZEM
  2. NITROGLYCERIN. [Concomitant]
     Active Substance: NITROGLYCERIN
  3. BUSPIRONE [Concomitant]
     Active Substance: BUSPIRONE HYDROCHLORIDE
  4. CETIRIZINE [Concomitant]
     Active Substance: CETIRIZINE HYDROCHLORIDE
  5. MONTELUKAST SODIUM. [Concomitant]
     Active Substance: MONTELUKAST SODIUM
  6. OXYCODONE [Concomitant]
     Active Substance: OXYCODONE
  7. XANAX [Concomitant]
     Active Substance: ALPRAZOLAM
  8. IMBRUVICA [Suspect]
     Active Substance: IBRUTINIB
     Indication: LYMPHOCYTIC LEUKAEMIA
     Route: 048
     Dates: start: 20190520, end: 2019
  9. ALPRAZOLAM. [Concomitant]
     Active Substance: ALPRAZOLAM
  10. QUETIAPINE FUMARATE. [Concomitant]
     Active Substance: QUETIAPINE FUMARATE
  11. TRINTELLIX [Concomitant]
     Active Substance: VORTIOXETINE HYDROBROMIDE
  12. ALBUTEROL SULFATE. [Concomitant]
     Active Substance: ALBUTEROL SULFATE
  13. NIZATIDINE. [Concomitant]
     Active Substance: NIZATIDINE
  14. PROAIR HFA [Concomitant]
     Active Substance: ALBUTEROL SULFATE
  15. ESOMEPRAZOLE MAGNESIUM. [Concomitant]
     Active Substance: ESOMEPRAZOLE MAGNESIUM
  16. FUROSEMIDE. [Concomitant]
     Active Substance: FUROSEMIDE
  17. SUCRALFATE. [Concomitant]
     Active Substance: SUCRALFATE
  18. LATANOPROST. [Concomitant]
     Active Substance: LATANOPROST
  19. LEVOTHYROXIN [Concomitant]
     Active Substance: LEVOTHYROXINE
  20. ONDANSETRON [Concomitant]
     Active Substance: ONDANSETRON

REACTIONS (11)
  - Dysuria [Unknown]
  - Product physical issue [Unknown]
  - Off label use [Unknown]
  - Pain [Unknown]
  - Incorrect dose administered [Unknown]
  - Blood pressure increased [Unknown]
  - Sleep disorder [Unknown]
  - Product use complaint [Unknown]
  - Paraesthesia [Unknown]
  - Abdominal pain upper [Unknown]
  - Urinary tract infection [Unknown]

NARRATIVE: CASE EVENT DATE: 20190520
